FAERS Safety Report 5417726-3 (Version None)
Quarter: 2007Q3

REPORT INFORMATION
  Report Type: 
  Country: None (occurrence: None)
  Receive Date: 20070815
  Receipt Date: 20070815
  Transmission Date: 20080115
  Serious: Yes (Hospitalization)
  Sender: FDA-Public Use
  Company Number: None

PATIENT
  Sex: Female
  Weight: 58.9676 kg

DRUGS (7)
  1. LOTREL [Suspect]
     Indication: HYPERTENSION
     Dosage: 10/20 PO  (THERAPY DATES: PRIOR TO ADMISSION)
     Route: 048
  2. ALLEGRA [Concomitant]
  3. SOTALOL HYDROCHLORIDE [Concomitant]
  4. XANAX [Concomitant]
  5. TIMOLOL MALEATE [Concomitant]
  6. MEGESTROL ACETATE [Concomitant]
  7. PAROXETINE [Concomitant]

REACTIONS (3)
  - DYSPHAGIA [None]
  - STRIDOR [None]
  - SWOLLEN TONGUE [None]
